FAERS Safety Report 5529265-X (Version None)
Quarter: 2007Q4

REPORT INFORMATION
  Report Type: 
  Country: None (occurrence: None)
  Receive Date: 20071129
  Receipt Date: 20071031
  Transmission Date: 20080405
  Serious: No
  Sender: FDA-Public Use
  Company Number: A0682810A

PATIENT
  Age: 41 Year
  Sex: Female
  Weight: 68.2 kg

DRUGS (1)
  1. WELLBUTRIN [Suspect]
     Indication: DEPRESSION
     Dosage: 100MG UNKNOWN
     Route: 048
     Dates: start: 20070406, end: 20070803

REACTIONS (2)
  - AMENORRHOEA [None]
  - MENOPAUSE [None]
